FAERS Safety Report 15260419 (Version 4)
Quarter: 2018Q3

REPORT INFORMATION
  Report Type: Report from Study
  Country: US (occurrence: US)
  Receive Date: 20180809
  Receipt Date: 20180831
  Transmission Date: 20181010
  Serious: No
  Sender: FDA-Public Use
  Company Number: US-JAZZ-2018-US-011566

PATIENT
  Age: 58 Year
  Sex: Male
  Weight: 105.67 kg

DRUGS (8)
  1. XYREM [Suspect]
     Active Substance: SODIUM OXYBATE
     Indication: NARCOLEPSY
     Dosage: 2.25 G, BID
     Route: 048
     Dates: start: 201807, end: 20180729
  2. VITAMIN B [Concomitant]
     Active Substance: VITAMIN B
  3. ERGOCALCIFEROL. [Concomitant]
     Active Substance: ERGOCALCIFEROL
  4. XYREM [Suspect]
     Active Substance: SODIUM OXYBATE
     Indication: SOMNOLENCE
  5. XYREM [Suspect]
     Active Substance: SODIUM OXYBATE
     Indication: CATAPLEXY
     Dosage: 3 G, BID
     Route: 048
     Dates: start: 20180730, end: 2018
  6. XANAX [Concomitant]
     Active Substance: ALPRAZOLAM
  7. MODAFINIL. [Concomitant]
     Active Substance: MODAFINIL
     Indication: SOMNOLENCE
  8. ASCORBIC ACID. [Concomitant]
     Active Substance: ASCORBIC ACID

REACTIONS (4)
  - Weight decreased [Unknown]
  - Insomnia [Unknown]
  - Anxiety [Unknown]
  - Nausea [Unknown]

NARRATIVE: CASE EVENT DATE: 201807
